FAERS Safety Report 17967219 (Version 1)
Quarter: 2020Q3

REPORT INFORMATION
  Report Type: Spontaneous
  Country: US (occurrence: US)
  Receive Date: 20200701
  Receipt Date: 20200701
  Transmission Date: 20201103
  Serious: Yes (Death)
  Sender: FDA-Public Use
  Company Number: US-UNITED THERAPEUTICS-UNT-2020-009634

PATIENT
  Sex: Male
  Weight: 97.96 kg

DRUGS (2)
  1. REMODULIN [Suspect]
     Active Substance: TREPROSTINIL
     Indication: PULMONARY ARTERIAL HYPERTENSION
     Dosage: UNK, CONTINUING
     Route: 058
     Dates: start: 20190724
  2. REMODULIN [Suspect]
     Active Substance: TREPROSTINIL
     Dosage: 0.0272 ?G/KG, CONTINUING
     Route: 058

REACTIONS (1)
  - Pulmonary arterial hypertension [Fatal]
